FAERS Safety Report 5909944-2 (Version None)
Quarter: 2008Q4

REPORT INFORMATION
  Report Type: 
  Country: None (occurrence: None)
  Receive Date: 20081006
  Receipt Date: 20081006
  Transmission Date: 20090506
  Serious: Yes (Other)
  Sender: FDA-Public Use
  Company Number: None

PATIENT
  Age: 20 Year
  Sex: Female
  Weight: 63.5036 kg

DRUGS (1)
  1. OXYCONTIN [Suspect]
     Indication: DEPENDENCE
     Dosage: 40 OR 80 MG CRUSHED DAILY NASAL
     Route: 045
     Dates: start: 20051007, end: 20081003

REACTIONS (3)
  - DRUG ABUSE [None]
  - DRUG DEPENDENCE [None]
  - TREATMENT FAILURE [None]
